FAERS Safety Report 8297501-5 (Version None)
Quarter: 2012Q1

REPORT INFORMATION
  Report Type: 
  Country: None (occurrence: None)
  Receive Date: 20120322
  Receipt Date: 20120209
  Transmission Date: 20120608
  Serious: Yes (Hospitalization)
  Sender: FDA-Public Use
  Company Number: UTC-014804

PATIENT
  Age: 50 Year
  Sex: Male
  Weight: 118.1 kg

DRUGS (5)
  1. COUMADIN [Concomitant]
  2. DIURETICS (DIURETICS) [Concomitant]
  3. TRACLEER [Concomitant]
  4. TYVASO [Suspect]
     Indication: PULMONARY ARTERIAL HYPERTENSION
     Dosage: 18 TO 54 MICROGRAMS, INHALATION
     Route: 055
     Dates: start: 20110628
  5. ADCIRCA [Concomitant]

REACTIONS (2)
  - DIZZINESS [None]
  - GALLBLADDER DISORDER [None]
